FAERS Safety Report 5346355-5 (Version None)
Quarter: 2007Q2

REPORT INFORMATION
  Report Type: 
  Country: None (occurrence: None)
  Receive Date: 20070605
  Receipt Date: 20070530
  Transmission Date: 20071010
  Serious: Yes (Life-Threatening, Hospitalization, Disabling)
  Sender: FDA-Public Use
  Company Number: DE-BOEHRINGER INGELHEIM PHARMACEUTICALS, INC.-2007-DE-01851DE

PATIENT
  Sex: Female
  Weight: 90 kg

DRUGS (10)
  1. SIFROL [Suspect]
     Indication: PARKINSON'S DISEASE
     Dosage: 3.5 TABLETS PER DAY
     Route: 048
     Dates: start: 20050101, end: 20060101
  2. MIRAPEX [Suspect]
     Indication: PARKINSON'S DISEASE
     Dosage: 3.5 TABLETS PER DAY
     Route: 048
     Dates: start: 20060101
  3. MADOPAR [Concomitant]
  4. LEVODOP [Concomitant]
     Dosage: LEVODOPA 100 MG/CARBIDOPA 25 MG
  5. L-THYROXIN [Concomitant]
     Dosage: 1-0-0
  6. RAMIPRIL [Concomitant]
     Dosage: 1-0-1
  7. FUROSEMIDE [Concomitant]
     Dosage: 1-0-0
  8. PANTOPRAZOL [Concomitant]
     Dosage: 1-0-1
  9. METAMIZOL [Concomitant]
     Dosage: 4X20 DROPS
  10. CIPROFLOXACIN HCL [Concomitant]
     Dosage: 1-0-1
     Dates: end: 20070117

REACTIONS (5)
  - CARDIAC FAILURE [None]
  - LIVER FUNCTION TEST ABNORMAL [None]
  - OEDEMA PERIPHERAL [None]
  - SLEEP DISORDER [None]
  - WEIGHT INCREASED [None]
